FAERS Safety Report 8924891 (Version 1)
Quarter: 2012Q4

REPORT INFORMATION
  Report Type: 
  Country: PT (occurrence: PT)
  Receive Date: 20121126
  Receipt Date: 20121126
  Transmission Date: 20130627
  Serious: Yes (Death, Hospitalization)
  Sender: FDA-Public Use
  Company Number: PT-BAXTER-2012BAX024248

PATIENT
  Sex: Female

DRUGS (3)
  1. EXTRANEAL 75MG/ML - SACO - 5 UNIDADE(S) - 2000 ML [Suspect]
     Indication: CAPD
     Route: 033
     Dates: start: 20110915
  2. PHYSIONEAL 40 GLUCOSE 1.36% W/V / 13.6 MG/ML [Suspect]
     Indication: CAPD
     Route: 033
     Dates: start: 20110915
  3. PHYSIONEAL 40 GLUCOSE 2.27% W/V / 22.7 MG/ML [Suspect]
     Indication: CAPD
     Route: 033
     Dates: start: 20110915

REACTIONS (6)
  - Peritoneal cloudy effluent [Recovered/Resolved]
  - Pyrexia [Not Recovered/Not Resolved]
  - Necrosis [Fatal]
  - Post procedural complication [Fatal]
  - Leg amputation [None]
  - Postoperative thrombosis [None]
